FAERS Safety Report 24701989 (Version 2)
Quarter: 2025Q4

REPORT INFORMATION
  Report Type: Spontaneous
  Country: RU (occurrence: RU)
  Receive Date: 20241205
  Receipt Date: 20251212
  Transmission Date: 20260117
  Serious: Yes (Other)
  Sender: TEVA
  Company Number: RU-TEVA-VS-3270040

PATIENT
  Age: 54 Year
  Sex: Male

DRUGS (19)
  1. EPLERENONE [Suspect]
     Active Substance: EPLERENONE
     Indication: Atrial fibrillation
     Route: 065
     Dates: end: 201808
  2. EPLERENONE [Suspect]
     Active Substance: EPLERENONE
     Indication: Atrial fibrillation
     Route: 065
     Dates: start: 2013, end: 201808
  3. METHYLPREDNISOLONE ACETATE [Suspect]
     Active Substance: METHYLPREDNISOLONE ACETATE
     Indication: Myocarditis
     Route: 065
  4. TORSEMIDE [Suspect]
     Active Substance: TORSEMIDE
     Indication: Atrial fibrillation
     Route: 065
     Dates: start: 2013
  5. FUROSEMIDE [Suspect]
     Active Substance: FUROSEMIDE
     Indication: Product used for unknown indication
     Route: 065
  6. AMIODARONE HYDROCHLORIDE [Suspect]
     Active Substance: AMIODARONE HYDROCHLORIDE
     Indication: Ventricular tachycardia
     Route: 065
  7. AMIODARONE HYDROCHLORIDE [Suspect]
     Active Substance: AMIODARONE HYDROCHLORIDE
     Indication: Ventricular tachycardia
     Route: 065
     Dates: start: 2013
  8. ATORVASTATIN [Suspect]
     Active Substance: ATORVASTATIN
     Indication: Product used for unknown indication
     Route: 065
  9. AZATHIOPRINE [Suspect]
     Active Substance: AZATHIOPRINE
     Indication: Myocarditis
     Route: 065
     Dates: end: 201804
  10. OMEPRAZOLE [Suspect]
     Active Substance: OMEPRAZOLE
     Indication: Product used for unknown indication
     Route: 065
  11. ALLOPURINOL SODIUM [Suspect]
     Active Substance: ALLOPURINOL SODIUM
     Indication: Gout
     Route: 065
  12. DIGOXIN [Suspect]
     Active Substance: DIGOXIN
     Indication: Atrial fibrillation
     Route: 065
     Dates: start: 2013
  13. CARVEDILOL [Suspect]
     Active Substance: CARVEDILOL
     Indication: Ventricular tachycardia
     Route: 065
  14. CARVEDILOL [Suspect]
     Active Substance: CARVEDILOL
     Indication: Ventricular tachycardia
     Route: 065
     Dates: start: 2013
  15. PERINDOPRIL [Suspect]
     Active Substance: PERINDOPRIL
     Indication: Ventricular tachycardia
     Route: 065
     Dates: start: 2013, end: 201808
  16. PERINDOPRIL [Suspect]
     Active Substance: PERINDOPRIL
     Indication: Ventricular tachycardia
     Route: 065
     Dates: end: 201808
  17. DABIGATRAN ETEXILATE [Suspect]
     Active Substance: DABIGATRAN ETEXILATE
     Indication: Atrial fibrillation
     Route: 065
     Dates: start: 2013
  18. RIVAROXABAN [Suspect]
     Active Substance: RIVAROXABAN
     Indication: Product used for unknown indication
     Route: 065
  19. URSODIOL [Suspect]
     Active Substance: URSODIOL
     Indication: Product used for unknown indication
     Route: 065

REACTIONS (4)
  - Drug eruption [Unknown]
  - Hyperthyroidism [Recovered/Resolved]
  - Drug ineffective [Unknown]
  - Weight decreased [Unknown]

NARRATIVE: CASE EVENT DATE: 20130101
